FAERS Safety Report 20875884 (Version 1)
Quarter: 2022Q2

REPORT INFORMATION
  Report Type: Report from Study
  Country: US (occurrence: None)
  Receive Date: 20220526
  Receipt Date: 20220526
  Transmission Date: 20220721
  Serious: Yes (Death, Hospitalization)
  Sender: FDA-Public Use
  Company Number: US-ROCHE-3094814

PATIENT
  Age: 83 Year
  Sex: Female
  Weight: 63.5 kg

DRUGS (4)
  1. ATEZOLIZUMAB [Suspect]
     Active Substance: ATEZOLIZUMAB
     Indication: Breast cancer metastatic
     Dosage: OVER 30-60 MINUTES ON DAY 22 OF CYCLE 1 AND DAYS 1 AND 22 OF SUBSEQUENT CYCLES. CYCLES REPEAT EVERY
     Route: 041
     Dates: start: 20220202, end: 20220405
  2. PACLITAXEL [Suspect]
     Active Substance: PACLITAXEL
     Indication: Breast cancer metastatic
     Dosage: ON 19/JAN/2022 RECEIVED LAST DOSE.
     Route: 042
     Dates: start: 20211117, end: 20220119
  3. PERTUZUMAB [Suspect]
     Active Substance: PERTUZUMAB
     Indication: Breast cancer metastatic
     Dosage: ON 05/APR/2022 RECEIVED LAST DOSE
     Route: 042
     Dates: start: 20211110, end: 20220405
  4. TRASTUZUMAB [Suspect]
     Active Substance: TRASTUZUMAB
     Indication: Breast cancer metastatic
     Dosage: ON 05/APR/2022 RECEIVED LAST DOSE
     Route: 041
     Dates: start: 20211110, end: 20220405

REACTIONS (4)
  - Cardiac failure [Fatal]
  - Pericardial effusion [Fatal]
  - Mitral valve disease [Fatal]
  - Atrial fibrillation [Fatal]

NARRATIVE: CASE EVENT DATE: 20220406
